FAERS Safety Report 24328181 (Version 2)
Quarter: 2024Q4

REPORT INFORMATION
  Report Type: Spontaneous
  Country: IE (occurrence: IE)
  Receive Date: 20240917
  Receipt Date: 20241009
  Transmission Date: 20250115
  Serious: Yes (Other)
  Sender: SANDOZ
  Company Number: None

PATIENT
  Age: 76 Year
  Sex: Female
  Weight: 95 kg

DRUGS (16)
  1. CARDURA XL [Suspect]
     Active Substance: DOXAZOSIN MESYLATE
     Indication: Hypertension
     Dosage: 8.000MG
     Route: 048
     Dates: start: 20231211
  2. MOMETASONE [Suspect]
     Active Substance: MOMETASONE
     Indication: Product used for unknown indication
     Dosage: 2 DF, QD NASAL SPRAY 2 PUFFS DAILY
     Route: 045
  3. APIXABAN [Concomitant]
     Active Substance: APIXABAN
     Indication: Product used for unknown indication
     Dosage: 5.000MG
     Route: 048
  4. ATORVASTATIN [Concomitant]
     Active Substance: ATORVASTATIN
     Indication: Product used for unknown indication
     Dosage: UNK GENERIC
     Route: 048
  5. BETAHISTINE [Concomitant]
     Active Substance: BETAHISTINE
     Indication: Product used for unknown indication
     Dosage: 16.000MG (G)
     Route: 048
  6. CALCIUM\CHOLECALCIFEROL [Concomitant]
     Active Substance: CALCIUM\CHOLECALCIFEROL
     Indication: Product used for unknown indication
     Route: 048
  7. AMILORIDE HYDROCHLORIDE\FUROSEMIDE [Concomitant]
     Active Substance: AMILORIDE HYDROCHLORIDE\FUROSEMIDE
     Indication: Product used for unknown indication
     Route: 065
  8. AMILORIDE HYDROCHLORIDE\FUROSEMIDE [Concomitant]
     Active Substance: AMILORIDE HYDROCHLORIDE\FUROSEMIDE
     Route: 065
  9. NEXIUM [Concomitant]
     Active Substance: ESOMEPRAZOLE MAGNESIUM
     Indication: Product used for unknown indication
     Route: 048
  10. PROLIA [Concomitant]
     Active Substance: DENOSUMAB
     Indication: Product used for unknown indication
     Dosage: 60.000MG
     Route: 065
  11. PROLIA [Concomitant]
     Active Substance: DENOSUMAB
     Dosage: 60.000MG
     Route: 065
  12. QUETIAPINE [Concomitant]
     Active Substance: QUETIAPINE
     Indication: Product used for unknown indication
     Dosage: 12.500MG (G)
     Route: 048
  13. SOTALOL HYDROCHLORIDE [Concomitant]
     Active Substance: SOTALOL HYDROCHLORIDE
     Indication: Product used for unknown indication
     Route: 048
  14. TREHALOSE [Concomitant]
     Active Substance: TREHALOSE
     Indication: Product used for unknown indication
     Route: 065
  15. TREHALOSE [Concomitant]
     Active Substance: TREHALOSE
     Route: 065
  16. URSODIOL [Concomitant]
     Active Substance: URSODIOL
     Indication: Product used for unknown indication
     Dosage: 250.000MG
     Route: 048

REACTIONS (2)
  - Product residue present [Unknown]
  - Drug ineffective [Unknown]

NARRATIVE: CASE EVENT DATE: 20240801
